FAERS Safety Report 21793293 (Version 1)
Quarter: 2022Q4

REPORT INFORMATION
  Report Type: Report from Study
  Country: US (occurrence: US)
  Receive Date: 20221229
  Receipt Date: 20221229
  Transmission Date: 20230113
  Serious: Yes (Other)
  Sender: FDA-Public Use
  Company Number: US-002147023-NVSC2022US297024

PATIENT
  Sex: Female

DRUGS (1)
  1. PROMACTA [Suspect]
     Active Substance: ELTROMBOPAG OLAMINE
     Indication: Product used for unknown indication
     Dosage: UNK
     Route: 065

REACTIONS (31)
  - Malignant melanoma [Unknown]
  - Uterine haemorrhage [Unknown]
  - Haemorrhage [Unknown]
  - Diabetes mellitus [Unknown]
  - Rheumatoid arthritis [Unknown]
  - Renal haemorrhage [Unknown]
  - Immune thrombocytopenia [Unknown]
  - Pertussis [Unknown]
  - Drug hypersensitivity [Unknown]
  - Hypertension [Unknown]
  - Anaemia [Unknown]
  - Weight increased [Unknown]
  - Skin disorder [Unknown]
  - Rosacea [Unknown]
  - Psoriasis [Unknown]
  - Hormone level abnormal [Unknown]
  - Heavy menstrual bleeding [Unknown]
  - Stress [Unknown]
  - Platelet count increased [Unknown]
  - COVID-19 [Unknown]
  - Illness [Unknown]
  - Dyspnoea [Unknown]
  - Secretion discharge [Unknown]
  - Respiratory disorder [Unknown]
  - Cerebral disorder [Unknown]
  - Mobility decreased [Unknown]
  - Fall [Unknown]
  - Sleep apnoea syndrome [Unknown]
  - Gait disturbance [Unknown]
  - Platelet count decreased [Unknown]
  - Pyrexia [Unknown]
